FAERS Safety Report 6304091-2 (Version None)
Quarter: 2009Q3

REPORT INFORMATION
  Report Type: 
  Country: None (occurrence: None)
  Receive Date: 20090810
  Receipt Date: 20090810
  Transmission Date: 20100115
  Serious: Yes (Hospitalization)
  Sender: FDA-Public Use
  Company Number: None

PATIENT
  Age: 70 Year
  Sex: Male
  Weight: 98.2 kg

DRUGS (10)
  1. GEMCITABINE [Suspect]
     Indication: NON-SMALL CELL LUNG CANCER STAGE IV
     Dosage: 400MG/M2 Q2 WEEKS IV
     Route: 042
     Dates: start: 20090226, end: 20090506
  2. PEMETREXED [Suspect]
     Indication: NON-SMALL CELL LUNG CANCER STAGE IV
     Dosage: 1200MG/M2 Q2 WEEKS IV
     Route: 042
     Dates: start: 20090226, end: 20090506
  3. AVASTIN [Suspect]
     Indication: NON-SMALL CELL LUNG CANCER STAGE IV
     Dosage: 10MG/KG Q2 WEEKS IV
     Route: 042
     Dates: start: 20090226, end: 20090506
  4. PROTONIX [Concomitant]
  5. ZOCOR [Concomitant]
  6. TERAZOSIN [Concomitant]
  7. METOPROLOL [Concomitant]
  8. XANAX [Concomitant]
  9. MORPHINE [Concomitant]
  10. FOLIC ACID [Concomitant]

REACTIONS (1)
  - RENAL FAILURE ACUTE [None]
